FAERS Safety Report 12380268 (Version 1)
Quarter: 2016Q2

REPORT INFORMATION
  Report Type: Spontaneous
  Country: US (occurrence: US)
  Receive Date: 20160518
  Receipt Date: 20160518
  Transmission Date: 20160815
  Serious: Yes (Other)
  Sender: FDA-Public Use
  Company Number: US-STRIDES ARCOLAB LIMITED-2015SP001609

PATIENT

DRUGS (5)
  1. CHLORHEXIDINE [Concomitant]
     Active Substance: CHLORHEXIDINE
     Indication: PROPHYLAXIS
     Dosage: UNK
  2. PREDNISONE. [Concomitant]
     Active Substance: PREDNISONE
     Indication: ADRENAL INSUFFICIENCY
     Dosage: 6 MG, QD
  3. VANCOMYCIN [Suspect]
     Active Substance: VANCOMYCIN
     Indication: PRODUCT USED FOR UNKNOWN INDICATION
     Dosage: 50 MG, UNK
     Route: 042
  4. PROPOFOL. [Concomitant]
     Active Substance: PROPOFOL
     Indication: INDUCTION OF ANAESTHESIA
     Dosage: 100 MG, UNK
     Route: 042
  5. SUCCINYLCHOLINE [Concomitant]
     Active Substance: SUCCINYLCHOLINE
     Indication: INDUCTION OF ANAESTHESIA
     Dosage: 100 MG, UNK

REACTIONS (6)
  - Anaphylactic reaction [Recovered/Resolved]
  - Hypoventilation [Recovered/Resolved]
  - Erythema [Recovered/Resolved]
  - Airway peak pressure increased [Recovered/Resolved]
  - Flushing [Recovered/Resolved]
  - Hypotension [Recovered/Resolved]
